FAERS Safety Report 24897002 (Version 1)
Quarter: 2025Q1

REPORT INFORMATION
  Report Type: Spontaneous
  Country: PT (occurrence: PT)
  Receive Date: 20250128
  Receipt Date: 20250128
  Transmission Date: 20250408
  Serious: Yes (Other)
  Sender: NOVITIUM PHARMA
  Company Number: PT-NOVITIUMPHARMA-2025PTNVP00191

PATIENT
  Age: 71 Year
  Sex: Male

DRUGS (2)
  1. HYDROXYCHLOROQUINE SULFATE [Suspect]
     Active Substance: HYDROXYCHLOROQUINE SULFATE
     Indication: Arthralgia
  2. DOLUTEGRAVIR SODIUM\RILPIVIRINE HYDROCHLORIDE [Concomitant]
     Active Substance: DOLUTEGRAVIR SODIUM\RILPIVIRINE HYDROCHLORIDE
     Indication: HIV infection

REACTIONS (2)
  - Acute febrile neutrophilic dermatosis [Recovered/Resolved]
  - Drug eruption [Recovered/Resolved]
